FAERS Safety Report 6093069-2 (Version None)
Quarter: 2009Q1

REPORT INFORMATION
  Report Type: 
  Country: None (occurrence: None)
  Receive Date: 20090225
  Receipt Date: 20090219
  Transmission Date: 20090719
  Serious: Yes (Other)
  Sender: FDA-Public Use
  Company Number: GB-GILEAD-2009-0019893

PATIENT
  Sex: Male
  Weight: 93 kg

DRUGS (5)
  1. ATRIPLA [Suspect]
     Indication: HIV INFECTION
     Route: 048
     Dates: start: 20071018
  2. TRUVADA [Concomitant]
     Indication: HIV INFECTION
  3. EFAVIRENZ [Concomitant]
     Indication: HIV INFECTION
  4. CALCICHEW [Concomitant]
  5. MULTI-VITAMINS [Concomitant]

REACTIONS (3)
  - EOSINOPHILIC PUSTULAR FOLLICULITIS [None]
  - SKIN HYPERPIGMENTATION [None]
  - VASCULITIS [None]
